FAERS Safety Report 5760206-6 (Version None)
Quarter: 2008Q2

REPORT INFORMATION
  Report Type: 
  Country: None (occurrence: None)
  Receive Date: 20080605
  Receipt Date: 20080528
  Transmission Date: 20081010
  Serious: Yes (Other)
  Sender: FDA-Public Use
  Company Number: DK-GENENTECH-262129

PATIENT
  Age: 45 Year
  Sex: Female

DRUGS (1)
  1. MABTHERA [Suspect]
     Indication: BASEDOW'S DISEASE
     Dosage: 375 MG/M2, 3/WEEK

REACTIONS (1)
  - COLITIS ULCERATIVE [None]
